FAERS Safety Report 16034789 (Version 1)
Quarter: 2019Q1

REPORT INFORMATION
  Report Type: Spontaneous
  Country: US (occurrence: US)
  Receive Date: 20190206
  Receipt Date: 20190206
  Transmission Date: 20190418
  Serious: Yes (Other)
  Sender: FDA-Public Use
  Company Number: None

PATIENT
  Age: 61 Year
  Sex: Male
  Weight: 90.7 kg

DRUGS (24)
  1. ONDANSETRON [Concomitant]
     Active Substance: ONDANSETRON
  2. PREDNISOLONE ACETATE. [Concomitant]
     Active Substance: PREDNISOLONE ACETATE
  3. ALUMINIM/MAGNESIUM [Concomitant]
  4. ACYCLOVIR. [Concomitant]
     Active Substance: ACYCLOVIR
  5. OMEPRAZOLE. [Concomitant]
     Active Substance: OMEPRAZOLE
  6. RANITIDINE. [Concomitant]
     Active Substance: RANITIDINE
  7. B COMPEX VITAMINS [Concomitant]
  8. FAMOTIDINE. [Concomitant]
     Active Substance: FAMOTIDINE
  9. NYSTATIN. [Concomitant]
     Active Substance: NYSTATIN
  10. HYDROCHLOROTHIAZIDE. [Concomitant]
     Active Substance: HYDROCHLOROTHIAZIDE
  11. MULTIVITAMIN [Concomitant]
     Active Substance: VITAMINS
  12. DEXAMETHASONE. [Concomitant]
     Active Substance: DEXAMETHASONE
  13. POTASSIUM CHLORIDE. [Concomitant]
     Active Substance: POTASSIUM CHLORIDE
  14. SENNA [Concomitant]
     Active Substance: SENNA LEAF\SENNOSIDES\SENNOSIDES A AND B
  15. CYTARABINE. [Suspect]
     Active Substance: CYTARABINE
  16. RITUXIMAB. [Suspect]
     Active Substance: RITUXIMAB
  17. DIPHENHYDRAMINE. [Concomitant]
     Active Substance: DIPHENHYDRAMINE
  18. PALONOSETRON. [Concomitant]
     Active Substance: PALONOSETRON HYDROCHLORIDE
  19. CIPROFLOXACIN. [Concomitant]
     Active Substance: CIPROFLOXACIN
  20. PROCHLORPERAZINE. [Concomitant]
     Active Substance: PROCHLORPERAZINE
  21. SAW PALMETTO [Concomitant]
     Active Substance: HERBALS\SAW PALMETTO
  22. ACALABRUTINIB. [Suspect]
     Active Substance: ACALABRUTINIB
  23. BENDAMUSTINE [Suspect]
     Active Substance: BENDAMUSTINE
  24. PEGFILGRASTIM [Concomitant]
     Active Substance: PEGFILGRASTIM

REACTIONS (1)
  - Retinal vein thrombosis [None]

NARRATIVE: CASE EVENT DATE: 20190122
